FAERS Safety Report 17323614 (Version 2)
Quarter: 2020Q1

REPORT INFORMATION
  Report Type: Spontaneous
  Country: SI (occurrence: SI)
  Receive Date: 20200127
  Receipt Date: 20200227
  Transmission Date: 20200409
  Serious: Yes (Death, Other)
  Sender: FDA-Public Use
  Company Number: SI-AMGEN-SVNSP2020012164

PATIENT

DRUGS (5)
  1. INFLIXIMAB [Suspect]
     Active Substance: INFLIXIMAB
     Indication: PRODUCT USED FOR UNKNOWN INDICATION
     Dosage: UNK
     Route: 065
  2. SECUKINUMAB. [Suspect]
     Active Substance: SECUKINUMAB
     Indication: PRODUCT USED FOR UNKNOWN INDICATION
     Dosage: UNK
     Route: 065
  3. ENBREL [Suspect]
     Active Substance: ETANERCEPT
     Indication: PRODUCT USED FOR UNKNOWN INDICATION
     Dosage: UNK
     Route: 065
  4. ADALIMUMAB [Suspect]
     Active Substance: ADALIMUMAB
     Indication: PRODUCT USED FOR UNKNOWN INDICATION
     Dosage: UNK
     Route: 065
  5. INFLIXIMAB [Suspect]
     Active Substance: INFLIXIMAB
     Dosage: UNK
     Route: 065

REACTIONS (18)
  - Psoriatic arthropathy [Unknown]
  - Headache [Unknown]
  - Hypersensitivity [Unknown]
  - Pain [Unknown]
  - Dyspnoea [Unknown]
  - Drug ineffective [Unknown]
  - Blood test abnormal [Unknown]
  - Crohn^s disease [Unknown]
  - Death [Fatal]
  - Neoplasm malignant [Unknown]
  - Nervous system disorder [Unknown]
  - Urticaria [Unknown]
  - Vomiting [Unknown]
  - Injection site reaction [Unknown]
  - Colitis ulcerative [Unknown]
  - Drug intolerance [Unknown]
  - Infection [Unknown]
  - Fatigue [Unknown]
